FAERS Safety Report 23950902 (Version 1)
Quarter: 2024Q2

REPORT INFORMATION
  Report Type: Report from Study
  Country: CO (occurrence: CO)
  Receive Date: 20240607
  Receipt Date: 20240607
  Transmission Date: 20240716
  Serious: Yes (Other)
  Sender: FDA-Public Use
  Company Number: CO-JNJFOC-20240584979

PATIENT
  Age: 60 Year
  Sex: Male
  Weight: 72 kg

DRUGS (2)
  1. IMBRUVICA [Suspect]
     Active Substance: IBRUTINIB
     Indication: Chronic lymphocytic leukaemia
     Route: 048
     Dates: start: 20240320, end: 20240416
  2. Iximab [Concomitant]
     Indication: Product used for unknown indication
     Route: 050

REACTIONS (1)
  - Marginal zone lymphoma [Unknown]

NARRATIVE: CASE EVENT DATE: 20240429
